FAERS Safety Report 17630487 (Version 1)
Quarter: 2020Q2

REPORT INFORMATION
  Report Type: Spontaneous
  Country: US (occurrence: US)
  Receive Date: 20200404
  Receipt Date: 20200404
  Transmission Date: 20200713
  Serious: No
  Sender: FDA-Public Use
  Company Number: None

PATIENT
  Age: 17 Year
  Sex: Female
  Weight: 144 kg

DRUGS (3)
  1. MIRACLE MINERAL SOLUTION [Suspect]
     Active Substance: SODIUM CHLORITE
     Indication: BACTERIAL INFECTION
     Route: 048
     Dates: start: 20090612, end: 20130404
  2. MIRACLE MINERAL SOLUTION [Suspect]
     Active Substance: SODIUM CHLORITE
     Indication: VIRAL INFECTION
     Route: 048
     Dates: start: 20090612, end: 20130404
  3. MIRACLE MINERAL SOLUTION [Suspect]
     Active Substance: SODIUM CHLORITE
     Indication: IMMUNE SYSTEM DISORDER
     Route: 048
     Dates: start: 20090612, end: 20130404

REACTIONS (1)
  - Diarrhoea [None]

NARRATIVE: CASE EVENT DATE: 20120710
